FAERS Safety Report 8850789 (Version 1)
Quarter: 2012Q4

REPORT INFORMATION
  Report Type: Report from Study
  Country: US (occurrence: US)
  Receive Date: 20121019
  Receipt Date: 20121019
  Transmission Date: 20130627
  Serious: Yes (Other)
  Sender: FDA-Public Use
  Company Number: US-UCBSA-062430

PATIENT
  Age: 48 Year
  Sex: Female
  Weight: 86.1 kg

DRUGS (1)
  1. CIMZIA [Suspect]
     Indication: CROHN^S DISEASE
     Dosage: DOSE: 400 MG
     Dates: start: 20090708

REACTIONS (1)
  - Staphylococcal infection [Not Recovered/Not Resolved]
